FAERS Safety Report 16891539 (Version 2)
Quarter: 2020Q1

REPORT INFORMATION
  Report Type: Spontaneous
  Country: JP (occurrence: JP)
  Receive Date: 20191007
  Receipt Date: 20200130
  Transmission Date: 20200409
  Serious: Yes (Death, Other)
  Sender: FDA-Public Use
  Company Number: JP-009507513-1910JPN000654J

PATIENT
  Sex: Male
  Weight: 47 kg

DRUGS (11)
  1. PRECEDEX [Concomitant]
     Active Substance: DEXMEDETOMIDINE HYDROCHLORIDE
     Indication: SEDATION
     Dosage: CONTINUOUS INFUSION
     Route: 042
     Dates: start: 20190913, end: 20190925
  2. INTRALIPOS10% [Concomitant]
     Indication: POST PROCEDURAL COMPLICATION
     Dosage: 100 MILLILITER, BID
     Route: 042
     Dates: start: 20190905, end: 20190925
  3. OMEPRAZOLE. [Concomitant]
     Active Substance: OMEPRAZOLE
     Indication: PROPHYLAXIS
     Dosage: 20 MILLIGRAM, BID
     Route: 042
     Dates: start: 20190831, end: 20190928
  4. ZERBAXA [Suspect]
     Active Substance: CEFTOLOZANE SULFATE\TAZOBACTAM SODIUM
     Indication: ABDOMINAL INFECTION
     Dosage: 1500 MILLIGRAM, TID
     Route: 041
     Dates: start: 20190920, end: 20190925
  5. FENTANYL. [Concomitant]
     Active Substance: FENTANYL
     Indication: SEDATION
     Dosage: CONTINUOUS INFUSION
     Route: 042
     Dates: start: 20190913, end: 20190926
  6. FLOMOXEF [Concomitant]
     Active Substance: FLOMOXEF
     Dosage: 3 GRAM
     Route: 065
  7. ZOSYN [Concomitant]
     Active Substance: PIPERACILLIN SODIUM\TAZOBACTAM SODIUM
     Dosage: UNK
     Route: 065
  8. CEFMETAZOLE [Concomitant]
     Active Substance: CEFMETAZOLE
     Dosage: 3 GRAM
     Route: 065
     Dates: start: 20190831
  9. ONOACT [Concomitant]
     Active Substance: LANDIOLOL HYDROCHLORIDE
     Indication: TACHYCARDIA
     Dosage: CONTINUOUS INFUSION
     Route: 041
     Dates: start: 20190913, end: 20190927
  10. NORADRENALINE [Concomitant]
     Active Substance: NOREPINEPHRINE
     Indication: BLOOD PRESSURE DECREASED
     Dosage: CONTINUOUS INFUSION
     Route: 042
     Dates: start: 20190913, end: 20190928
  11. MEROPENEM. [Concomitant]
     Active Substance: MEROPENEM
     Dosage: 1.5 GRAM
     Route: 065
     Dates: start: 20190909

REACTIONS (1)
  - Pneumonia [Fatal]
